FAERS Safety Report 6985311-8 (Version None)
Quarter: 2010Q3

REPORT INFORMATION
  Report Type: 
  Country: None (occurrence: None)
  Receive Date: 20100915
  Receipt Date: 20100809
  Transmission Date: 20110219
  Serious: No
  Sender: FDA-Public Use
  Company Number: US-PFIZER INC-2010100134

PATIENT
  Sex: Male
  Weight: 89.796 kg

DRUGS (9)
  1. ZOLOFT [Suspect]
     Indication: DEPRESSION
     Dosage: UNK
     Route: 048
  2. ZOLOFT [Suspect]
     Dosage: UNK
     Route: 048
     Dates: start: 20100101
  3. SERTRALINE HYDROCHLORIDE [Suspect]
     Indication: DEPRESSION
     Dosage: UNK
     Route: 048
  4. NEXIUM [Suspect]
     Indication: OESOPHAGEAL DISORDER
     Dosage: UNK
     Route: 048
  5. NEXIUM [Suspect]
     Indication: GASTRIC DISORDER
  6. FENOFIBRIC ACID [Concomitant]
     Indication: BLOOD CHOLESTEROL INCREASED
     Dosage: 135 MG, DAILY
     Route: 048
  7. AMLODIPINE BESYLATE AND BENAZEPRIL HCL [Concomitant]
     Indication: HYPERTENSION
     Dosage: 10 MG/20 MG, DAILY
     Route: 048
  8. DEXLANSOPRAZOLE [Concomitant]
     Indication: HYPERCHLORHYDRIA
     Dosage: 60 MG, DAILY
     Route: 048
  9. CLONAZEPAM [Concomitant]
     Indication: ANXIETY
     Dosage: 1 MG, AS NEEDED
     Route: 048

REACTIONS (9)
  - DISTURBANCE IN SEXUAL AROUSAL [None]
  - DRUG ADMINISTRATION ERROR [None]
  - DRUG EFFECT INCREASED [None]
  - DRUG INEFFECTIVE [None]
  - DYSPEPSIA [None]
  - ERUCTATION [None]
  - NASAL CONGESTION [None]
  - NAUSEA [None]
  - WRONG TECHNIQUE IN DRUG USAGE PROCESS [None]
